FAERS Safety Report 6836602-2 (Version None)
Quarter: 2010Q3

REPORT INFORMATION
  Report Type: 
  Country: None (occurrence: None)
  Receive Date: 20100713
  Receipt Date: 20100702
  Transmission Date: 20110219
  Serious: Yes (Hospitalization)
  Sender: FDA-Public Use
  Company Number: PHHY2009CA40958

PATIENT
  Sex: Male

DRUGS (4)
  1. SANDOSTATIN LAR [Suspect]
     Indication: METASTATIC CARCINOID TUMOUR
     Dosage: 30 MG, EVERY 4 WEEKS
     Route: 030
     Dates: start: 20060115, end: 20080410
  2. SANDOSTATIN LAR [Suspect]
     Dosage: UNK
  3. SANDOSTATIN [Suspect]
     Indication: METASTATIC CARCINOID TUMOUR
     Dosage: 100 UG, BID
     Route: 058
     Dates: start: 20060101
  4. SANDOSTATIN [Suspect]
     Dosage: 100 UG, BID
     Route: 058
     Dates: start: 20080101

REACTIONS (5)
  - DYSPNOEA [None]
  - FACE OEDEMA [None]
  - FLUSHING [None]
  - PAIN [None]
  - VOMITING [None]
